FAERS Safety Report 6051389-1 (Version None)
Quarter: 2009Q1

REPORT INFORMATION
  Report Type: 
  Country: None (occurrence: None)
  Receive Date: 20090126
  Receipt Date: 20090116
  Transmission Date: 20090719
  Serious: Yes (Hospitalization)
  Sender: FDA-Public Use
  Company Number: US-AVENTIS-200910205GDDC

PATIENT
  Age: 65 Year
  Sex: Male
  Weight: 88.2 kg

DRUGS (17)
  1. TAXOTERE [Suspect]
     Route: 042
     Dates: start: 20080709, end: 20081203
  2. CODE UNBROKEN [Suspect]
     Dosage: DOSE: UNK
     Route: 048
     Dates: start: 20080708, end: 20080708
  3. CODE UNBROKEN [Suspect]
     Dosage: DOSE: UNK
     Route: 048
     Dates: start: 20080709, end: 20081221
  4. PREDNISONE TAB [Suspect]
     Route: 048
     Dates: start: 20080709, end: 20081221
  5. OXYCODONE HCL [Concomitant]
     Dates: start: 20081203
  6. OXYCODONE HCL [Concomitant]
     Dates: start: 20080702
  7. SERTRALINE [Concomitant]
     Dates: start: 20080910
  8. PROCHLORPERAZINE [Concomitant]
     Dates: start: 20080709
  9. DEXAMETHASONE [Concomitant]
     Dates: start: 20080706
  10. FUROSEMIDE [Concomitant]
     Dates: start: 20080702
  11. POTASSIUM [Concomitant]
     Dates: start: 20080702
  12. DOCUSATE [Concomitant]
     Dates: start: 20080510
  13. SENOKOT                            /00142201/ [Concomitant]
     Dates: start: 20080519
  14. ATORVASTATIN [Concomitant]
     Dates: start: 20080512
  15. TAMSULOSIN HCL [Concomitant]
     Dates: start: 20080512
  16. ASPIRIN [Concomitant]
     Dates: start: 20080512
  17. FINASTERIDE [Concomitant]
     Dates: start: 20080512

REACTIONS (3)
  - HYDROCEPHALUS [None]
  - HYPOKALAEMIA [None]
  - URINARY TRACT INFECTION [None]
